FAERS Safety Report 8184954-6 (Version None)
Quarter: 2012Q1

REPORT INFORMATION
  Report Type: 
  Country: None (occurrence: None)
  Receive Date: 20120305
  Receipt Date: 20120220
  Transmission Date: 20120608
  Serious: Yes (Death, Life-Threatening)
  Sender: FDA-Public Use
  Company Number: FR-GLAXOSMITHKLINE-B0782593A

PATIENT
  Sex: Female

DRUGS (14)
  1. PIPERACILLIN AND TAZOBACTAM [Suspect]
     Indication: PRODUCT USED FOR UNKNOWN INDICATION
     Route: 065
     Dates: start: 20111228, end: 20120104
  2. AMIODARONE HCL [Suspect]
     Indication: PRODUCT USED FOR UNKNOWN INDICATION
     Route: 042
     Dates: start: 20111230
  3. IDARUBICIN HCL [Suspect]
     Indication: ACUTE LEUKAEMIA
     Route: 065
     Dates: start: 20111228
  4. VANCOMYCIN [Suspect]
     Indication: PRODUCT USED FOR UNKNOWN INDICATION
     Route: 065
     Dates: start: 20120105
  5. LEVOFLOXACIN [Suspect]
     Indication: PRODUCT USED FOR UNKNOWN INDICATION
     Route: 065
     Dates: start: 20111229
  6. ZOFRAN [Concomitant]
  7. EMEND [Suspect]
     Indication: PRODUCT USED FOR UNKNOWN INDICATION
     Route: 065
     Dates: start: 20111228
  8. CYTARABINE [Suspect]
     Indication: ACUTE LEUKAEMIA
     Route: 065
     Dates: start: 20111228
  9. NOXAFIL [Concomitant]
  10. METOCLOPRAMIDE [Concomitant]
  11. ZYVOX [Suspect]
     Indication: PRODUCT USED FOR UNKNOWN INDICATION
     Route: 065
     Dates: start: 20111230
  12. HYDREA [Suspect]
     Indication: ACUTE LEUKAEMIA
     Route: 065
     Dates: start: 20111226, end: 20111228
  13. VALACYCLOVIR HYDROCHLORIDE [Suspect]
     Indication: PRODUCT USED FOR UNKNOWN INDICATION
     Route: 065
     Dates: start: 20111228
  14. RASBURICASE [Suspect]
     Indication: PRODUCT USED FOR UNKNOWN INDICATION
     Route: 065
     Dates: start: 20111228

REACTIONS (7)
  - HYPOTENSION [None]
  - DERMATITIS BULLOUS [None]
  - APLASIA [None]
  - SKIN DISORDER [None]
  - DEHYDRATION [None]
  - TACHYCARDIA [None]
  - RENAL FAILURE ACUTE [None]
